FAERS Safety Report 9203778 (Version 1)
Quarter: 2013Q1

REPORT INFORMATION
  Report Type: Spontaneous
  Country: US (occurrence: None)
  Receive Date: 20130329
  Receipt Date: 20130329
  Transmission Date: 20140127
  Serious: Yes (Other)
  Sender: FDA-Public Use
  Company Number: None

PATIENT
  Age: 21 Year
  Sex: Female
  Weight: 56.7 kg

DRUGS (1)
  1. ESCITALOPRAM 10 MG [Suspect]
     Indication: ANXIETY
     Route: 048
     Dates: start: 20130216, end: 20130315

REACTIONS (5)
  - Hypotension [None]
  - Anxiety [None]
  - Condition aggravated [None]
  - Product substitution issue [None]
  - Drug ineffective [None]
